FAERS Safety Report 6848387-4 (Version None)
Quarter: 2010Q3

REPORT INFORMATION
  Report Type: 
  Country: None (occurrence: None)
  Receive Date: 20100716
  Receipt Date: 20100715
  Transmission Date: 20110219
  Serious: Yes (Hospitalization, Other)
  Sender: FDA-Public Use
  Company Number: US-ROXANE LABORATORIES, INC.-2010-RO-00856RO

PATIENT
  Sex: Male

DRUGS (5)
  1. METHADONE HCL [Suspect]
     Indication: BACK PAIN
     Dosage: 110 MG
     Route: 048
  2. ENALAPRIL MALEATE [Concomitant]
  3. GABAPENTIN [Concomitant]
     Indication: DEPRESSION
  4. CELEXA [Concomitant]
  5. CLONAPINE [Concomitant]
     Indication: SLEEP DISORDER

REACTIONS (3)
  - CEREBROVASCULAR ACCIDENT [None]
  - HYPERTENSION [None]
  - WITHDRAWAL SYNDROME [None]
